FAERS Safety Report 16058475 (Version 1)
Quarter: 2019Q1

REPORT INFORMATION
  Report Type: Spontaneous
  Country: US (occurrence: US)
  Receive Date: 20190311
  Receipt Date: 20190311
  Transmission Date: 20190418
  Serious: Yes (Other)
  Sender: FDA-Public Use
  Company Number: US-ABBVIE-19S-163-2692270-00

PATIENT
  Age: 72 Year
  Sex: Female

DRUGS (5)
  1. SYNTHROID [Suspect]
     Active Substance: LEVOTHYROXINE SODIUM
     Indication: THYROIDECTOMY
     Route: 048
     Dates: start: 2009
  2. LEVOTHYROXINE. [Suspect]
     Active Substance: LEVOTHYROXINE
     Indication: THYROIDECTOMY
     Route: 065
     Dates: start: 2009
  3. BOSULIF [Suspect]
     Active Substance: BOSUTINIB MONOHYDRATE
     Indication: CHRONIC MYELOID LEUKAEMIA
     Route: 048
  4. SPRYCEL [Suspect]
     Active Substance: DASATINIB
     Indication: CHRONIC MYELOID LEUKAEMIA
     Route: 065
  5. NATURE-THROID [Concomitant]
     Active Substance: THYROID, PORCINE
     Indication: THYROIDECTOMY
     Route: 048
     Dates: start: 2013

REACTIONS (11)
  - Defaecation urgency [Unknown]
  - Diarrhoea [Unknown]
  - Abdominal pain upper [Unknown]
  - Liver disorder [Recovering/Resolving]
  - Intervertebral disc degeneration [Unknown]
  - Gastrointestinal haemorrhage [Unknown]
  - Chronic myeloid leukaemia [Unknown]
  - Ageusia [Unknown]
  - Rocky mountain spotted fever [Unknown]
  - Lyme disease [Unknown]
  - Anosmia [Unknown]

NARRATIVE: CASE EVENT DATE: 2015
